FAERS Safety Report 7257816-6 (Version None)
Quarter: 2011Q1

REPORT INFORMATION
  Report Type: 
  Country: None (occurrence: None)
  Receive Date: 20110129
  Receipt Date: 20100502
  Transmission Date: 20110831
  Serious: No
  Sender: FDA-Public Use
  Company Number: US-ABBOTT-10P-163-0642610-00

PATIENT
  Age: 46 Year
  Sex: Female

DRUGS (4)
  1. NEURONTIN [Concomitant]
     Indication: PRODUCT USED FOR UNKNOWN INDICATION
  2. HYDROCODONE [Concomitant]
     Indication: PAIN
  3. HUMIRA [Suspect]
     Indication: ANKYLOSING SPONDYLITIS
     Dates: start: 20090501
  4. MOBIC [Concomitant]
     Indication: PRODUCT USED FOR UNKNOWN INDICATION

REACTIONS (7)
  - SWELLING FACE [None]
  - PRURITUS [None]
  - LACRIMATION INCREASED [None]
  - LOCAL SWELLING [None]
  - ERYTHEMA [None]
  - LIP SWELLING [None]
  - SEASONAL ALLERGY [None]
